FAERS Safety Report 16788451 (Version 3)
Quarter: 2020Q1

REPORT INFORMATION
  Report Type: Spontaneous
  Country: US (occurrence: US)
  Receive Date: 20190910
  Receipt Date: 20200331
  Transmission Date: 20200409
  Serious: Yes (Other)
  Sender: FDA-Public Use
  Company Number: US-UNITED THERAPEUTICS-UNT-2019-014699

PATIENT
  Age: 42 Month
  Sex: Male

DRUGS (4)
  1. BOSENTAN. [Suspect]
     Active Substance: BOSENTAN
     Indication: PULMONARY HYPERTENSION
     Dosage: UNK
     Route: 065
  2. SILDENAFIL. [Concomitant]
     Active Substance: SILDENAFIL
     Dosage: 10 MG, TID
     Route: 065
  3. SILDENAFIL. [Concomitant]
     Active Substance: SILDENAFIL
     Indication: PULMONARY HYPERTENSION
     Dosage: UNK
     Route: 065
  4. REMODULIN [Suspect]
     Active Substance: TREPROSTINIL
     Indication: PULMONARY HYPERTENSION
     Dosage: UNK, CONTINUING
     Route: 058

REACTIONS (1)
  - Hepatic enzyme increased [Unknown]
